FAERS Safety Report 13545701 (Version 2)
Quarter: 2017Q2

REPORT INFORMATION
  Report Type: Spontaneous
  Country: US (occurrence: US)
  Receive Date: 20170515
  Receipt Date: 20170524
  Transmission Date: 20170830
  Serious: No
  Sender: FDA-Public Use
  Company Number: US-009507513-1705USA000266

PATIENT
  Age: 21 Year
  Sex: Female
  Weight: 68.03 kg

DRUGS (1)
  1. NEXPLANON [Suspect]
     Active Substance: ETONOGESTREL
     Indication: CONTRACEPTION
     Dosage: 1 DF, 3 YEAR IMPLANT
     Route: 065
     Dates: start: 20161219

REACTIONS (4)
  - Vomiting [Unknown]
  - Breast tenderness [Unknown]
  - Food craving [Unknown]
  - Dizziness [Unknown]

NARRATIVE: CASE EVENT DATE: 201701
